FAERS Safety Report 9838798 (Version 2)
Quarter: 2014Q1

REPORT INFORMATION
  Report Type: Spontaneous
  Country: IT (occurrence: IT)
  Receive Date: 20140123
  Receipt Date: 20140130
  Transmission Date: 20141002
  Serious: No
  Sender: FDA-Public Use
  Company Number: IT-TEVA-456056ISR

PATIENT
  Age: 75 Year
  Sex: Female

DRUGS (6)
  1. AMOXICILLIN [Suspect]
     Indication: URINARY TRACT INFECTION
     Dosage: 2 DOSAGE FORMS DAILY; 2 DF DAILY
     Route: 048
     Dates: start: 20131125, end: 20131201
  2. TICLOPIDINE HYDROCHLORIDE [Concomitant]
     Indication: CEREBROVASCULAR DISORDER
  3. METFORMIN HYDROCHLORIDE [Concomitant]
     Indication: DIABETES MELLITUS
  4. IRBESARTAN [Concomitant]
     Indication: HYPERTENSION
  5. OMEPRAZOLE SODIUM [Concomitant]
     Indication: PRODUCT USED FOR UNKNOWN INDICATION
  6. ATORVASTATIN CALCIUM TRIHYDRATE [Concomitant]
     Indication: PRODUCT USED FOR UNKNOWN INDICATION

REACTIONS (1)
  - Diarrhoea [Recovering/Resolving]
